FAERS Safety Report 4873861-X (Version None)
Quarter: 2006Q1

REPORT INFORMATION
  Report Type: 
  Country: None (occurrence: None)
  Receive Date: 20060103
  Receipt Date: 20060103
  Transmission Date: 20060701
  Serious: Yes (Other)
  Sender: FDA-Public Use
  Company Number: None

PATIENT
  Age: 26 Year
  Sex: Female
  Weight: 63.5036 kg

DRUGS (3)
  1. YASMIN [Suspect]
     Indication: CONTRACEPTION
     Dosage: ONE PILL 1/DAY FOR 3 WKS/MO PO
     Route: 048
     Dates: start: 20031201, end: 20051230
  2. YASMIN [Suspect]
     Indication: OVULATION PAIN
     Dosage: ONE PILL 1/DAY FOR 3 WKS/MO PO
     Route: 048
     Dates: start: 20031201, end: 20051230
  3. YASMIN [Suspect]
     Indication: PROPHYLAXIS
     Dosage: ONE PILL 1/DAY FOR 3 WKS/MO PO
     Route: 048
     Dates: start: 20031201, end: 20051230

REACTIONS (16)
  - ANXIETY [None]
  - CONDITION AGGRAVATED [None]
  - DEHYDRATION [None]
  - DIZZINESS [None]
  - DRUG INEFFECTIVE [None]
  - FUNGAL INFECTION [None]
  - HEAT EXHAUSTION [None]
  - MALAISE [None]
  - MUSCLE SPASMS [None]
  - NAUSEA [None]
  - PAIN [None]
  - PALPITATIONS [None]
  - POLLAKIURIA [None]
  - PYREXIA [None]
  - SKIN INFECTION [None]
  - TREMOR [None]
